FAERS Safety Report 8041056-7 (Version None)
Quarter: 2012Q1

REPORT INFORMATION
  Report Type: 
  Country: None (occurrence: None)
  Receive Date: 20120112
  Receipt Date: 20120104
  Transmission Date: 20120608
  Serious: Yes (Hospitalization)
  Sender: FDA-Public Use
  Company Number: US-BAYER-2012-002418

PATIENT
  Age: 24 Year
  Sex: Female
  Weight: 92.971 kg

DRUGS (10)
  1. YAZ [Suspect]
     Indication: CONTRACEPTION
     Dosage: UNK
     Dates: start: 20061201, end: 20090901
  2. ZOVIA 1/35E-21 [Concomitant]
     Dosage: UNK
     Dates: start: 20091007, end: 20091108
  3. IBUPROFEN [Concomitant]
  4. ZOVIA 1/35E-21 [Concomitant]
     Dosage: UNK
     Dates: start: 20081229, end: 20090403
  5. YASMIN [Suspect]
     Indication: CONTRACEPTION
     Dosage: UNK
     Dates: start: 20061201, end: 20090901
  6. LEVOTHYROXINE SODIUM [Concomitant]
     Indication: THYROID DISORDER
     Dosage: UNK
     Route: 048
     Dates: start: 20030801
  7. PHENTERMINE [Concomitant]
     Route: 048
  8. MEDROL [Concomitant]
     Dosage: 4 MG, UNK
     Dates: start: 20091111
  9. DROSPIRENONE AND ETHINYL ESTRADIOL [Suspect]
     Indication: CONTRACEPTION
     Dosage: UNK
     Dates: start: 20061201, end: 20090901
  10. ADVAIR DISKUS 100/50 [Concomitant]
     Indication: ASTHMA
     Dosage: UNK
     Dates: start: 20091001

REACTIONS (3)
  - PALPITATIONS [None]
  - PULMONARY EMBOLISM [None]
  - DYSPNOEA [None]
